FAERS Safety Report 15854026 (Version 2)
Quarter: 2019Q1

REPORT INFORMATION
  Report Type: Spontaneous
  Country: US (occurrence: US)
  Receive Date: 20190122
  Receipt Date: 20190129
  Transmission Date: 20190417
  Serious: No
  Sender: FDA-Public Use
  Company Number: US-PFIZER INC-2019023609

PATIENT
  Age: 68 Year
  Sex: Male
  Weight: 80.73 kg

DRUGS (5)
  1. ATORVASTATIN MYLAN [Suspect]
     Active Substance: ATORVASTATIN
     Dosage: 20 MG, UNK
  2. METOPROLOL SUCCINATE. [Concomitant]
     Active Substance: METOPROLOL SUCCINATE
     Indication: BLOOD PRESSURE ABNORMAL
     Dosage: 25 MG, 1X/DAY (TAKES 1 TABLET AT NIGHT BY MOUTH)
     Route: 048
     Dates: start: 201810
  3. AMLODIPINE BESILATE [Concomitant]
     Active Substance: AMLODIPINE BESYLATE
     Indication: BLOOD PRESSURE ABNORMAL
     Dosage: 5 MG, 1X/DAY(TAKES 1 TABLET IN THE MORNING BY MOUTH)
     Route: 048
     Dates: start: 201810
  4. ATORVASTATIN MYLAN [Suspect]
     Active Substance: ATORVASTATIN
     Indication: BLOOD CHOLESTEROL ABNORMAL
     Dosage: 40 MG, UNK
  5. ATORVASTATIN MYLAN [Suspect]
     Active Substance: ATORVASTATIN
     Dosage: 80 MG, 1X/DAY
     Route: 048

REACTIONS (7)
  - Muscle spasms [Recovering/Resolving]
  - Splenomegaly [Unknown]
  - Blood cholesterol decreased [Unknown]
  - Fatigue [Recovering/Resolving]
  - Low density lipoprotein increased [Unknown]
  - Pain [Not Recovered/Not Resolved]
  - High density lipoprotein increased [Unknown]

NARRATIVE: CASE EVENT DATE: 201805
